FAERS Safety Report 8905805 (Version 1)
Quarter: 2012Q4

REPORT INFORMATION
  Report Type: 
  Country: GB (occurrence: GB)
  Receive Date: 20121113
  Receipt Date: 20121113
  Transmission Date: 20130627
  Serious: Yes (Other)
  Sender: FDA-Public Use
  Company Number: GB-GLAXOSMITHKLINE-B0842175A

PATIENT
  Age: 40 Year
  Sex: Female
  Weight: 72 kg

DRUGS (9)
  1. BETNOVATE [Suspect]
     Indication: RASH PRURITIC
     Route: 061
     Dates: start: 20120922, end: 20121007
  2. ENANTYUM [Suspect]
     Indication: LIGAMENT SPRAIN
     Dosage: 75MG Per day
     Route: 048
     Dates: start: 20120909, end: 20120915
  3. ETOFENAMATE [Suspect]
     Indication: LIGAMENT SPRAIN
     Route: 061
     Dates: start: 20120911, end: 20120918
  4. NAPROXEN [Suspect]
     Indication: SWELLING
     Dosage: 1000MG Per day
     Route: 048
     Dates: start: 20120920, end: 20120923
  5. EURAX [Suspect]
     Indication: RASH PRURITIC
     Route: 061
     Dates: start: 20120920, end: 20120922
  6. CETIRIZINE [Suspect]
     Indication: RASH PRURITIC
     Dosage: 10MG Per day
     Route: 048
     Dates: start: 20120920, end: 20121002
  7. CHLORPHENIRAMINE [Suspect]
     Indication: PRURITUS
     Dosage: 4MG Per day
     Route: 048
     Dates: start: 20120921, end: 20121002
  8. PHENOXYMETHYLPENICILLIN [Suspect]
     Indication: DERMATITIS INFECTED
     Dosage: 2000MG Per day
     Route: 048
     Dates: start: 20120921, end: 20120928
  9. FLUCLOXACILLIN [Suspect]
     Indication: DERMATITIS INFECTED
     Dosage: 2000MG Per day
     Route: 048
     Dates: start: 20120921, end: 20120928

REACTIONS (7)
  - Rash [Recovered/Resolved with Sequelae]
  - Oedema peripheral [Recovered/Resolved]
  - Rash pruritic [Recovered/Resolved]
  - Blister [Recovered/Resolved]
  - Dermatitis infected [Recovered/Resolved]
  - Joint swelling [Recovered/Resolved]
  - Skin exfoliation [Not Recovered/Not Resolved]
